FAERS Safety Report 23867400 (Version 1)
Quarter: 2024Q2

REPORT INFORMATION
  Report Type: Other
  Country: CN (occurrence: CN)
  Receive Date: 20240517
  Receipt Date: 20240517
  Transmission Date: 20240716
  Serious: Yes (Hospitalization, Other)
  Sender: FDA-Public Use
  Company Number: CN-Nuvo Pharmaceuticals Inc-2157128

PATIENT
  Age: 36 Year
  Sex: Male

DRUGS (4)
  1. SULFASALAZINE [Suspect]
     Active Substance: SULFASALAZINE
     Indication: Ankylosing spondylitis
     Route: 065
  2. CEFTRIAXONE [Concomitant]
     Active Substance: CEFTRIAXONE\CEFTRIAXONE SODIUM
     Route: 065
  3. LEVOFLOXACIN [Concomitant]
     Active Substance: LEVOFLOXACIN
     Route: 065
  4. AMOXICILLIN [Concomitant]
     Active Substance: AMOXICILLIN
     Route: 065

REACTIONS (3)
  - Haemophagocytic lymphohistiocytosis [Recovered/Resolved]
  - Product use in unapproved indication [Unknown]
  - Drug reaction with eosinophilia and systemic symptoms [Recovered/Resolved]
